FAERS Safety Report 16168981 (Version 6)
Quarter: 2020Q1

REPORT INFORMATION
  Report Type: Spontaneous
  Country: US (occurrence: US)
  Receive Date: 20190408
  Receipt Date: 20200228
  Transmission Date: 20200409
  Serious: Yes (Hospitalization, Other)
  Sender: FDA-Public Use
  Company Number: US-PFIZER INC-2019142205

PATIENT
  Age: 65 Year
  Sex: Female
  Weight: 86 kg

DRUGS (3)
  1. NORPACE CR [Suspect]
     Active Substance: DISOPYRAMIDE PHOSPHATE
     Indication: CARDIOMYOPATHY
     Dosage: 150 MG, 2X/DAY
     Route: 048
     Dates: start: 201807, end: 201902
  2. NORPACE CR [Suspect]
     Active Substance: DISOPYRAMIDE PHOSPHATE
     Dosage: 150 MG, 2X/DAY (TAKE 1 CAPSULE BY MOUTH EVERY 12 HOURS)
     Route: 048
     Dates: start: 20190423
  3. NORPACE CR [Suspect]
     Active Substance: DISOPYRAMIDE PHOSPHATE
     Dosage: UNK
     Route: 048
     Dates: end: 2020

REACTIONS (13)
  - Hypersensitivity pneumonitis [Recovered/Resolved]
  - Chest discomfort [Unknown]
  - Cardiovascular disorder [Unknown]
  - Loss of personal independence in daily activities [Unknown]
  - Syncope [Recovering/Resolving]
  - Multimorbidity [Unknown]
  - Hypertrophic cardiomyopathy [Recovering/Resolving]
  - Feeling abnormal [Recovered/Resolved]
  - Disease recurrence [Recovered/Resolved]
  - Dizziness [Unknown]
  - Dyspnoea [Unknown]
  - Gait disturbance [Unknown]
  - Feeling abnormal [Unknown]

NARRATIVE: CASE EVENT DATE: 201811
